FAERS Safety Report 8934430 (Version 3)
Quarter: 2013Q2

REPORT INFORMATION
  Report Type: Report from Study
  Country: JP (occurrence: JP)
  Receive Date: 20121129
  Receipt Date: 20130618
  Transmission Date: 20140414
  Serious: Yes (Other)
  Sender: FDA-Public Use
  Company Number: JP-VERTEX PHARMACEUTICAL INC.-AE-2012-005980

PATIENT
  Age: 62 Year
  Sex: Female

DRUGS (12)
  1. VX-950 (TELAPREVIR) [Suspect]
     Indication: CHRONIC HEPATITIS C
     Dosage: 2250 MG, QD
     Route: 048
     Dates: start: 20120210, end: 20120419
  2. REBETOL [Suspect]
     Indication: CHRONIC HEPATITIS C
     Dosage: 600 MG, QD
     Route: 048
     Dates: start: 20120210, end: 20120308
  3. REBETOL [Suspect]
     Dosage: 400 MG, QD
     Route: 048
     Dates: start: 20120309, end: 20120405
  4. REBETOL [Suspect]
     Dosage: 200 MG, QD
     Route: 048
     Dates: start: 20120420, end: 20120524
  5. REBETOL [Suspect]
     Dosage: 400 MG, QD
     Route: 048
     Dates: start: 20120525, end: 20120531
  6. REBETOL [Suspect]
     Dosage: 200 MG, QD
     Route: 048
     Dates: start: 20120601, end: 20120621
  7. REBETOL [Suspect]
     Dosage: 400 MG, QD
     Route: 048
     Dates: start: 20120622, end: 20120727
  8. PEGINTRON [Suspect]
     Indication: CHRONIC HEPATITIS C
     Dosage: 1.5 ?G/KG, WEEKLY
     Route: 058
     Dates: start: 20120210, end: 20120419
  9. PEGINTRON [Suspect]
     Dosage: 1.25 ?G/KG, WEEKLY
     Route: 058
     Dates: start: 20120420, end: 20120720
  10. CALONAL [Concomitant]
     Dosage: 1200 MG, QD
     Route: 048
     Dates: start: 20120210, end: 20120510
  11. RESTAMIN [Concomitant]
     Dosage: 30 G, QD/PRN
     Route: 061
     Dates: start: 20100210, end: 20120510
  12. ALLELOCK [Concomitant]
     Dosage: 10 MG, QD
     Route: 048
     Dates: start: 20120330, end: 20120510

REACTIONS (1)
  - Anaemia [Recovered/Resolved]
